FAERS Safety Report 5956007-6 (Version None)
Quarter: 2008Q4

REPORT INFORMATION
  Report Type: 
  Country: None (occurrence: None)
  Receive Date: 20081112
  Receipt Date: 20081030
  Transmission Date: 20090506
  Serious: Yes (Hospitalization)
  Sender: FDA-Public Use
  Company Number: 231295K08USA

PATIENT
  Age: 45 Year
  Sex: Female
  Weight: 101 kg

DRUGS (6)
  1. REBIF [Suspect]
     Indication: MULTIPLE SCLEROSIS
     Dosage: 22 MCG, 3 IN 1 WEEKS, SUBCUTANEOUS
     Route: 058
     Dates: start: 20071221
  2. NORVASC [Concomitant]
  3. HUMALOG [Concomitant]
  4. CRESTOR [Concomitant]
  5. VESICARE [Concomitant]
  6. LANTUS [Concomitant]

REACTIONS (1)
  - CORONARY ARTERY OCCLUSION [None]
